FAERS Safety Report 25995473 (Version 1)
Quarter: 2025Q4

REPORT INFORMATION
  Report Type: Spontaneous
  Country: US (occurrence: None)
  Receive Date: 20251103
  Receipt Date: 20251103
  Transmission Date: 20260118
  Serious: Yes (Hospitalization)
  Sender: FDA-CTU
  Company Number: None

PATIENT
  Sex: Female

DRUGS (1)
  1. ORENCIA [Suspect]
     Active Substance: ABATACEPT
     Indication: Rheumatoid arthritis
     Dosage: INJECT 1 ML UNDER THE SKIN (SUBCUTANEOUS INJECTION) ONE DAY EVERY WEEK
     Route: 058
     Dates: start: 20241120

REACTIONS (2)
  - Therapy interrupted [None]
  - Sepsis [None]
